FAERS Safety Report 13707503 (Version 1)
Quarter: 2017Q2

REPORT INFORMATION
  Report Type: Report from Study
  Country: None (occurrence: US)
  Receive Date: 20170630
  Receipt Date: 20170630
  Transmission Date: 20170830
  Serious: No
  Sender: FDA-Public Use
  Company Number: US-IPSEN BIOPHARMACEUTICALS, INC.-2014-0278

PATIENT
  Age: 47 Year
  Sex: Male

DRUGS (2)
  1. METFORMIN [Concomitant]
     Active Substance: METFORMIN HYDROCHLORIDE
     Indication: PRODUCT USED FOR UNKNOWN INDICATION
     Dosage: NOT REPORTED
     Route: 065
  2. SOMATULINE DEPOT [Suspect]
     Active Substance: LANREOTIDE ACETATE
     Indication: ACROMEGALY
     Dosage: 60 MG EVERY 28 DAYS
     Route: 058
     Dates: start: 20130612

REACTIONS (8)
  - Fatigue [None]
  - Influenza [Recovering/Resolving]
  - Pain [None]
  - Injection site photosensitivity reaction [None]
  - Vomiting [None]
  - Injection site pain [Unknown]
  - Dizziness [None]
  - Nausea [None]

NARRATIVE: CASE EVENT DATE: 201401
